FAERS Safety Report 4626911-X (Version None)
Quarter: 2005Q2

REPORT INFORMATION
  Report Type: 
  Country: None (occurrence: None)
  Receive Date: 20050401
  Receipt Date: 20050401
  Transmission Date: 20051028
  Serious: Yes (Other)
  Sender: FDA-Public Use
  Company Number: None

PATIENT
  Age: 77 Year
  Sex: Male
  Weight: 74.3899 kg

DRUGS (2)
  1. CELEBREX [Suspect]
     Indication: BACK PAIN
     Dosage: 1-200 MG CAPSULE PER DAY
  2. CELEBREX [Suspect]
     Indication: SPINAL COLUMN STENOSIS
     Dosage: 1-200 MG CAPSULE PER DAY

REACTIONS (6)
  - ABNORMAL BEHAVIOUR [None]
  - ATRIAL FIBRILLATION [None]
  - HEARING IMPAIRED [None]
  - MEMORY IMPAIRMENT [None]
  - MYOCARDIAL ISCHAEMIA [None]
  - TINNITUS [None]
